FAERS Safety Report 5477142-5 (Version None)
Quarter: 2007Q4

REPORT INFORMATION
  Report Type: 
  Country: None (occurrence: None)
  Receive Date: 20071004
  Receipt Date: 20071003
  Transmission Date: 20080405
  Serious: Yes (Other)
  Sender: FDA-Public Use
  Company Number: A0685526A

PATIENT
  Age: 61 Year
  Sex: Female

DRUGS (2)
  1. TUMS E-X TABLETS, ASSORTED FRUIT [Suspect]
  2. EXCEDRIN [Concomitant]

REACTIONS (3)
  - ANAPHYLACTIC REACTION [None]
  - BLOOD PRESSURE DECREASED [None]
  - EXPIRED DRUG ADMINISTERED [None]
